FAERS Safety Report 25442820 (Version 1)
Quarter: 2025Q2

REPORT INFORMATION
  Report Type: Spontaneous
  Country: FR (occurrence: FR)
  Receive Date: 20250617
  Receipt Date: 20250617
  Transmission Date: 20250717
  Serious: Yes (Death, Life-Threatening, Hospitalization, Other)
  Sender: UNICHEM
  Company Number: FR-UNICHEM LABORATORIES LIMITED-UNI-2025-FR-002465

PATIENT

DRUGS (2)
  1. METFORMIN [Suspect]
     Active Substance: METFORMIN HYDROCHLORIDE
     Indication: Type 2 diabetes mellitus
     Route: 065
  2. BIKTARVY [Suspect]
     Active Substance: BICTEGRAVIR SODIUM\EMTRICITABINE\TENOFOVIR ALAFENAMIDE FUMARATE
     Indication: HIV infection
     Route: 065

REACTIONS (9)
  - Poisoning deliberate [Fatal]
  - Intentional overdose [Fatal]
  - Hepatic failure [Fatal]
  - Hyperkalaemia [Fatal]
  - Hepatic cytolysis [Fatal]
  - Lactic acidosis [Fatal]
  - Hyperglycaemia [Unknown]
  - Anaemia [Unknown]
  - Prothrombin time shortened [Unknown]
